FAERS Safety Report 25676548 (Version 1)
Quarter: 2025Q3

REPORT INFORMATION
  Report Type: Spontaneous
  Country: US (occurrence: None)
  Receive Date: 20250813
  Receipt Date: 20250813
  Transmission Date: 20251020
  Serious: Yes (Death)
  Sender: FDA-CTU
  Company Number: None

PATIENT
  Age: 85 Year
  Sex: Male

DRUGS (11)
  1. TEMOZOLOMIDE [Suspect]
     Active Substance: TEMOZOLOMIDE
     Indication: Brain neoplasm malignant
     Route: 048
     Dates: start: 20250626, end: 20250626
  2. acetaminophen 500mg tablets [Concomitant]
  3. atorvastatin 80mg tablets [Concomitant]
  4. carbidopa/levodopa 25-100mg tablets [Concomitant]
  5. dexamethasone 2mg tablets [Concomitant]
  6. diltiazem ER 360mg capsules (24HR) [Concomitant]
  7. ELIQUIS [Concomitant]
     Active Substance: APIXABAN
  8. FINASTERIDE [Concomitant]
     Active Substance: FINASTERIDE
  9. PANTOPRAZOLE [Concomitant]
     Active Substance: PANTOPRAZOLE
  10. TAMSULOSIN [Concomitant]
     Active Substance: TAMSULOSIN
  11. toprol XL 100mg tablets [Concomitant]

REACTIONS (1)
  - Death [None]
